FAERS Safety Report 9352657 (Version 2)
Quarter: 2013Q2

REPORT INFORMATION
  Report Type: Spontaneous
  Country: CH (occurrence: CH)
  Receive Date: 20130618
  Receipt Date: 20130624
  Transmission Date: 20140414
  Serious: Yes (Other)
  Sender: FDA-Public Use
  Company Number: CH-AMGEN-CHESP2013042347

PATIENT
  Age: 31 Year
  Sex: Male

DRUGS (2)
  1. ENBREL [Suspect]
     Indication: ANKYLOSING SPONDYLITIS
     Dosage: 25 MG, 2X/WEEK
     Route: 058
     Dates: start: 2007
  2. ENBREL [Suspect]
     Indication: PSORIASIS

REACTIONS (3)
  - Polyneuropathy [Not Recovered/Not Resolved]
  - Iritis [Recovered/Resolved]
  - Dermal cyst [Recovered/Resolved]
